FAERS Safety Report 6434689-2 (Version None)
Quarter: 2009Q4

REPORT INFORMATION
  Report Type: 
  Country: None (occurrence: None)
  Receive Date: 20091109
  Receipt Date: 20091109
  Transmission Date: 20100525
  Serious: Yes (Other)
  Sender: FDA-Public Use
  Company Number: None

PATIENT
  Age: 49 Year
  Sex: Female
  Weight: 65.7716 kg

DRUGS (2)
  1. CIPRO [Suspect]
     Indication: URINARY TRACT INFECTION
     Dosage: 200 MG TWICE A DAY PO
     Route: 048
     Dates: start: 20080901, end: 20080910
  2. CIPRO [Suspect]
     Indication: URINARY TRACT INFECTION
     Dosage: 200 MG TWICE A DAY PO
     Route: 048
     Dates: start: 20081201, end: 20081210

REACTIONS (19)
  - ABDOMINAL DISCOMFORT [None]
  - ANXIETY [None]
  - CARDIAC DISORDER [None]
  - DEPERSONALISATION [None]
  - DIARRHOEA [None]
  - EXERCISE TOLERANCE DECREASED [None]
  - HYPOAESTHESIA [None]
  - MEMORY IMPAIRMENT [None]
  - MUSCLE TWITCHING [None]
  - MUSCULAR WEAKNESS [None]
  - MUSCULOSKELETAL PAIN [None]
  - MUSCULOSKELETAL STIFFNESS [None]
  - NAUSEA [None]
  - PAIN IN EXTREMITY [None]
  - PANIC ATTACK [None]
  - SENSORY DISTURBANCE [None]
  - SLEEP DISORDER [None]
  - TENDON PAIN [None]
  - URINARY TRACT INFECTION [None]
